FAERS Safety Report 9687991 (Version 1)
Quarter: 2013Q4

REPORT INFORMATION
  Report Type: Spontaneous
  Country: IT (occurrence: None)
  Receive Date: 20131112
  Receipt Date: 20131112
  Transmission Date: 20140711
  Serious: Yes (Hospitalization, Other)
  Sender: FDA-Public Use
  Company Number: 2013IT002722

PATIENT
  Sex: 0

DRUGS (3)
  1. PONATINIB (AP24534) TABLET [Suspect]
     Indication: ACUTE LYMPHOCYTIC LEUKAEMIA
     Dosage: 45 MG, QD, ORAL
     Route: 048
     Dates: start: 20130306, end: 20131008
  2. CLEXANE (ENOXAPARIN SODIUM) [Concomitant]
  3. ZYLORIC (ALLOPURINOL) [Concomitant]

REACTIONS (2)
  - Deep vein thrombosis [None]
  - Platelet count decreased [None]
